FAERS Safety Report 5734065-1 (Version None)
Quarter: 2008Q2

REPORT INFORMATION
  Report Type: 
  Country: None (occurrence: None)
  Receive Date: 20080509
  Receipt Date: 20080502
  Transmission Date: 20081010
  Serious: Yes (Other)
  Sender: FDA-Public Use
  Company Number: US-PFIZER INC-2008038425

PATIENT
  Sex: Female
  Weight: 125 kg

DRUGS (3)
  1. CADUET [Suspect]
     Indication: BLOOD PRESSURE
     Dosage: TEXT:10MG/20MG ONCE DAILY
     Route: 048
     Dates: start: 20070101, end: 20080201
  2. TOPROL-XL [Concomitant]
     Route: 048
  3. CELEXA [Concomitant]
     Route: 048

REACTIONS (3)
  - FLUID RETENTION [None]
  - GAIT DISTURBANCE [None]
  - OEDEMA PERIPHERAL [None]
